FAERS Safety Report 5986895-9 (Version None)
Quarter: 2008Q4

REPORT INFORMATION
  Report Type: 
  Country: None (occurrence: None)
  Receive Date: 20081125
  Receipt Date: 20081114
  Transmission Date: 20090506
  Serious: Yes (Death)
  Sender: FDA-Public Use
  Company Number: THYM-1000835

PATIENT
  Age: 42 Year
  Sex: Male
  Weight: 168 kg

DRUGS (28)
  1. THYMOGLOBULIN [Suspect]
     Indication: ORGAN TRANSPLANT
     Dosage: 3.75 MG/KG, QD, INTRAVENOUS
     Route: 042
     Dates: start: 20080610, end: 20080613
  2. THYMOGLOBULIN [Suspect]
  3. OMPERAZOL (OMEPRAZOLE) [Concomitant]
  4. ACYCLOVIR [Concomitant]
  5. CYCLOSPORINE [Concomitant]
  6. FLUCONAZOLE [Concomitant]
  7. CHLORHEXIDINE (CHLORHEXIDINE), 0.2% [Concomitant]
  8. NYSTATIN [Concomitant]
  9. CYCLIZINE [Concomitant]
  10. HALOPERIDOL [Concomitant]
  11. ONDANSETRON HCL [Concomitant]
  12. PIPERACILLIN SODIUM AND TAZOBACTAM SODIUM [Concomitant]
  13. CHLORAMPHENICOL [Concomitant]
  14. CIPROFLOXACIN [Concomitant]
  15. AMIKACIN [Concomitant]
  16. , 1% [Concomitant]
  17. METRONIDAZOLE [Concomitant]
  18. SLOW-K [Concomitant]
  19. VANCOMYCIN [Concomitant]
  20. TEMAZEPAM [Concomitant]
  21. HYDROCORTISONE [Concomitant]
  22. CHLORPHENIRAMINE MALEATE [Concomitant]
  23. ACETAMINOPHEN [Concomitant]
  24. MEPERIDINE HCL [Concomitant]
  25. CODEINE SUL TAB [Concomitant]
  26. FUROSEMIDE [Concomitant]
  27. LOPERAMIDE [Concomitant]
  28. ORAMORPH SR [Concomitant]

REACTIONS (3)
  - EPSTEIN-BARR VIRUS ASSOCIATED LYMPHOPROLIFERATIVE DISORDER [None]
  - FEBRILE NEUTROPENIA [None]
  - INSOMNIA [None]
